FAERS Safety Report 15456935 (Version 1)
Quarter: 2018Q4

REPORT INFORMATION
  Report Type: Spontaneous
  Country: JP (occurrence: JP)
  Receive Date: 20181002
  Receipt Date: 20181002
  Transmission Date: 20190204
  Serious: Yes (Other)
  Sender: FDA-Public Use
  Company Number: PHJP2018JP016949

PATIENT
  Age: 84 Year
  Sex: Female
  Weight: 60 kg

DRUGS (1)
  1. NEORAL [Suspect]
     Active Substance: CYCLOSPORINE
     Indication: DERMATITIS ATOPIC
     Dosage: 100 MG, QD, UPON WAKING
     Route: 048

REACTIONS (2)
  - Renal failure [Unknown]
  - Renal impairment [Unknown]
